FAERS Safety Report 6734136-7 (Version None)
Quarter: 2010Q2

REPORT INFORMATION
  Report Type: 
  Country: None (occurrence: None)
  Receive Date: 20100520
  Receipt Date: 20100513
  Transmission Date: 20101027
  Serious: Yes (Life-Threatening)
  Sender: FDA-Public Use
  Company Number: US-CELGENEUS-163-21880-10040377

PATIENT
  Sex: Female

DRUGS (4)
  1. REVLIMID [Suspect]
     Route: 048
     Dates: start: 20090501
  2. REVLIMID [Suspect]
     Route: 048
     Dates: start: 20090301
  3. REVLIMID [Suspect]
     Route: 048
     Dates: start: 20080327
  4. REVLIMID [Suspect]
     Route: 048
     Dates: start: 20100401

REACTIONS (2)
  - LEUKOPENIA [None]
  - NEUTROPENIA [None]
